FAERS Safety Report 6925808-X (Version None)
Quarter: 2010Q3

REPORT INFORMATION
  Report Type: 
  Country: None (occurrence: None)
  Receive Date: 20100810
  Receipt Date: 20100726
  Transmission Date: 20110219
  Serious: Yes (Disabling, Other)
  Sender: FDA-Public Use
  Company Number: 2010003044

PATIENT
  Age: 71 Year
  Sex: Female

DRUGS (1)
  1. ERLOTINIB (ERLOTINIB) (TABLET) (ERLOTINIB) [Suspect]
     Indication: SQUAMOUS CELL CARCINOMA
     Dosage: (150 MG, QD), ORAL
     Route: 048
     Dates: start: 20090323, end: 20090706

REACTIONS (3)
  - BRONCHIECTASIS [None]
  - HAEMOPTYSIS [None]
  - INTERSTITIAL LUNG DISEASE [None]
